FAERS Safety Report 6662512-X (Version None)
Quarter: 2010Q1

REPORT INFORMATION
  Report Type: 
  Country: None (occurrence: None)
  Receive Date: 20100329
  Receipt Date: 20100318
  Transmission Date: 20100710
  Serious: Yes (Hospitalization, Disabling, Other)
  Sender: FDA-Public Use
  Company Number: 002350

PATIENT
  Sex: Male
  Weight: 83 kg

DRUGS (41)
  1. NEUPRO [Suspect]
     Indication: PARKINSON'S DISEASE
     Dosage: (8 MG QD TRANSDERMAL)
     Route: 062
     Dates: start: 20090130, end: 20090227
  2. ROPINIROLE (ROPINIROL) [Suspect]
     Indication: PARKINSON'S DISEASE
     Dosage: (2 MG QD) ; (4 MG QD) ; (6 MG QD) ; (8 MG QD) ; (10 MG QD)
     Dates: start: 20080911, end: 20080912
  3. ROPINIROLE (ROPINIROL) [Suspect]
     Indication: PARKINSON'S DISEASE
     Dosage: (2 MG QD) ; (4 MG QD) ; (6 MG QD) ; (8 MG QD) ; (10 MG QD)
     Dates: start: 20080913, end: 20080914
  4. ROPINIROLE (ROPINIROL) [Suspect]
     Indication: PARKINSON'S DISEASE
     Dosage: (2 MG QD) ; (4 MG QD) ; (6 MG QD) ; (8 MG QD) ; (10 MG QD)
     Dates: start: 20080915, end: 20081113
  5. ROPINIROLE (ROPINIROL) [Suspect]
     Indication: PARKINSON'S DISEASE
     Dosage: (2 MG QD) ; (4 MG QD) ; (6 MG QD) ; (8 MG QD) ; (10 MG QD)
     Dates: start: 20081114, end: 20081117
  6. ROPINIROLE (ROPINIROL) [Suspect]
     Indication: PARKINSON'S DISEASE
     Dosage: (2 MG QD) ; (4 MG QD) ; (6 MG QD) ; (8 MG QD) ; (10 MG QD)
     Dates: start: 20081118, end: 20090129
  7. AZILECT [Suspect]
     Indication: PARKINSON'S DISEASE
     Dosage: (1 MG QD)
     Dates: start: 20080911, end: 20081118
  8. SIFROL (SIFROL) (NOT SPECIFIED) [Suspect]
     Indication: PARKINSON'S DISEASE
     Dosage: SEE IMAGE
     Dates: start: 20090201, end: 20090426
  9. SIFROL (SIFROL) (NOT SPECIFIED) [Suspect]
     Indication: PARKINSON'S DISEASE
     Dosage: SEE IMAGE
     Dates: start: 20090427, end: 20090429
  10. SIFROL (SIFROL) (NOT SPECIFIED) [Suspect]
     Indication: PARKINSON'S DISEASE
     Dosage: SEE IMAGE
     Dates: start: 20090430, end: 20090430
  11. SIFROL (SIFROL) (NOT SPECIFIED) [Suspect]
     Indication: PARKINSON'S DISEASE
     Dosage: SEE IMAGE
     Dates: start: 20090501, end: 20090502
  12. SIFROL (SIFROL) (NOT SPECIFIED) [Suspect]
     Indication: PARKINSON'S DISEASE
     Dosage: SEE IMAGE
     Dates: start: 20090503, end: 20090526
  13. SEROQUEL [Suspect]
     Indication: HALLUCINATION
     Dosage: SEE IMAGE
     Dates: start: 20081113, end: 20081116
  14. SEROQUEL [Suspect]
     Indication: HALLUCINATION
     Dosage: SEE IMAGE
     Dates: start: 20081117, end: 20081121
  15. SEROQUEL [Suspect]
     Indication: HALLUCINATION
     Dosage: SEE IMAGE
     Dates: start: 20081122, end: 20081123
  16. SEROQUEL [Suspect]
     Indication: HALLUCINATION
     Dosage: SEE IMAGE
     Dates: start: 20081124, end: 20090201
  17. SEROQUEL [Suspect]
     Indication: HALLUCINATION
     Dosage: SEE IMAGE
     Dates: start: 20090202, end: 20090426
  18. SEROQUEL [Suspect]
     Indication: HALLUCINATION
     Dosage: SEE IMAGE
     Dates: start: 20090527
  19. DELIX /00885601/ (DELIX) (NOT SPECIFIED) [Suspect]
     Indication: HYPERTENSION
     Dosage: (2.5 MG QD)
  20. OPIPRAMOL (OPIPRAMOL) [Suspect]
     Indication: DEPRESSION
     Dosage: (50 MG TID) ; (50 MG BID)
     Dates: start: 20080915, end: 20080101
  21. OPIPRAMOL (OPIPRAMOL) [Suspect]
     Indication: DEPRESSION
     Dosage: (50 MG TID) ; (50 MG BID)
     Dates: end: 20080914
  22. CITALOPRAM HYDROBROMIDE [Suspect]
     Indication: DEPRESSION
     Dosage: (20 MG QD) ; (40 MG QD)
     Dates: start: 20081119, end: 20090128
  23. CITALOPRAM HYDROBROMIDE [Suspect]
     Indication: DEPRESSION
     Dosage: (20 MG QD) ; (40 MG QD)
     Dates: start: 20081113, end: 20091118
  24. CIPRALEX /01588501/ (CIPRALEX) [Suspect]
     Indication: DEPRESSION
     Dosage: (20 MG QD)
     Dates: start: 20090129, end: 20090526
  25. CLOZAPIN (CLOZAPIN) (NOT SPECIFIED) [Suspect]
     Indication: HALLUCINATION
     Dosage: SEE IMAGE
     Dates: start: 20090427, end: 20090429
  26. CLOZAPIN (CLOZAPIN) (NOT SPECIFIED) [Suspect]
     Indication: HALLUCINATION
     Dosage: SEE IMAGE
     Dates: start: 20090430, end: 20090503
  27. CLOZAPIN (CLOZAPIN) (NOT SPECIFIED) [Suspect]
     Indication: HALLUCINATION
     Dosage: SEE IMAGE
     Dates: start: 20090504, end: 20090505
  28. CLOZAPIN (CLOZAPIN) (NOT SPECIFIED) [Suspect]
     Indication: HALLUCINATION
     Dosage: SEE IMAGE
     Dates: start: 20090506, end: 20090526
  29. TAVOR /00273201/ (TAVOR) [Suspect]
     Indication: RESTLESSNESS
     Dosage: (1 MG AS REQUIRED) ; (4 TIMES)
     Dates: start: 20081101
  30. TRUXAL /00012101/ (TRUXAL) [Suspect]
     Indication: RESTLESSNESS
     Dosage: (15 MG QD)
     Dates: start: 20081101, end: 20081101
  31. ASPIRIN [Concomitant]
  32. METFORMIN HCL [Concomitant]
  33. MOTILIUM /00498201/ [Concomitant]
  34. PRAVASTATIN [Concomitant]
  35. AMARYL [Concomitant]
  36. LOCOL [Concomitant]
  37. IRENAT [Concomitant]
  38. APO-PRIMIDONE [Concomitant]
  39. OBSIDAN /0023514/ [Concomitant]
  40. NEUROCIL /00038602/ [Concomitant]
  41. BENSERAZIDE HYDROCHLORIDE W/LEVODOPA [Concomitant]

REACTIONS (19)
  - ANXIETY [None]
  - BRADYPHRENIA [None]
  - CHILLS [None]
  - COGNITIVE DISORDER [None]
  - CONDITION AGGRAVATED [None]
  - DECREASED ACTIVITY [None]
  - DEPRESSION [None]
  - DIZZINESS [None]
  - DRUG EFFECT DECREASED [None]
  - DRUG INTOLERANCE [None]
  - HALLUCINATIONS, MIXED [None]
  - MOOD ALTERED [None]
  - NIGHTMARE [None]
  - PARKINSONISM [None]
  - PYREXIA [None]
  - RESTLESSNESS [None]
  - SLEEP DISORDER [None]
  - SYNCOPE [None]
  - TREMOR [None]
